FAERS Safety Report 13395225 (Version 1)
Quarter: 2017Q2

REPORT INFORMATION
  Report Type: Spontaneous
  Country: US (occurrence: US)
  Receive Date: 20170403
  Receipt Date: 20170403
  Transmission Date: 20170830
  Serious: No
  Sender: FDA-Public Use
  Company Number: US-PFIZER INC-2017139356

PATIENT
  Age: 70 Year
  Sex: Female

DRUGS (19)
  1. PREDNISONE. [Concomitant]
     Active Substance: PREDNISONE
  2. GABAPENTIN. [Concomitant]
     Active Substance: GABAPENTIN
     Indication: HYPERTENSION
     Dosage: UNK
  3. PANTOPRAZOLE [Concomitant]
     Active Substance: PANTOPRAZOLE
     Indication: HYPERTENSION
  4. LYRICA [Concomitant]
     Active Substance: PREGABALIN
     Indication: ABDOMINAL PAIN UPPER
  5. WELLBUTRIN [Concomitant]
     Active Substance: BUPROPION HYDROCHLORIDE
     Indication: QUALITY OF LIFE DECREASED
  6. LORATADINE. [Concomitant]
     Active Substance: LORATADINE
     Indication: HYPERTENSION
  7. OXYCODONE [Concomitant]
     Active Substance: OXYCODONE
     Indication: SLEEP DISORDER
  8. LISINOPRIL. [Concomitant]
     Active Substance: LISINOPRIL
     Indication: BLOOD CHOLESTEROL
  9. OMEPRAZOLE. [Concomitant]
     Active Substance: OMEPRAZOLE
     Indication: DEATH
  10. DOXYCYCLINE. [Concomitant]
     Active Substance: DOXYCYCLINE
  11. HYDROCHLOROTHIAZIDE. [Concomitant]
     Active Substance: HYDROCHLOROTHIAZIDE
  12. LOSARTAN. [Concomitant]
     Active Substance: LOSARTAN
     Indication: IN VIVO GENE THERAPY
  13. CLONAZEPAM. [Concomitant]
     Active Substance: CLONAZEPAM
     Indication: SLEEP DISORDER
  14. IBUPROFEN. [Concomitant]
     Active Substance: IBUPROFEN
     Indication: PYREXIA
  15. CHANTIX [Suspect]
     Active Substance: VARENICLINE TARTRATE
     Indication: HAIR GROWTH ABNORMAL
     Dosage: UNK
  16. VIAGRA [Concomitant]
     Active Substance: SILDENAFIL CITRATE
     Indication: HEADACHE
  17. ZOLOFT [Concomitant]
     Active Substance: SERTRALINE HYDROCHLORIDE
  18. NAPROXEN. [Concomitant]
     Active Substance: NAPROXEN
     Indication: PAIN IN EXTREMITY
  19. METFORMIN [Concomitant]
     Active Substance: METFORMIN HYDROCHLORIDE
     Indication: MICTURITION DISORDER

REACTIONS (2)
  - Product use in unapproved indication [Unknown]
  - Dysuria [Unknown]
